FAERS Safety Report 25404723 (Version 1)
Quarter: 2025Q2

REPORT INFORMATION
  Report Type: Report from Study
  Country: US (occurrence: US)
  Receive Date: 20250606
  Receipt Date: 20250606
  Transmission Date: 20250716
  Serious: Yes (Other)
  Sender: ALEXION PHARMACEUTICALS
  Company Number: US-AstraZeneca-CH-00881326A

PATIENT
  Weight: 76 kg

DRUGS (1)
  1. OLAPARIB [Suspect]
     Active Substance: OLAPARIB
     Indication: Breast cancer
     Dosage: 300 MILLIGRAM, BID

REACTIONS (7)
  - Hypotension [Unknown]
  - Heart rate increased [Unknown]
  - Constipation [Unknown]
  - Nausea [Unknown]
  - Dysphagia [Unknown]
  - Decreased appetite [Unknown]
  - Peripheral nerve injury [Unknown]
